FAERS Safety Report 25321838 (Version 1)
Quarter: 2025Q2

REPORT INFORMATION
  Report Type: Spontaneous
  Country: NL (occurrence: NL)
  Receive Date: 20250516
  Receipt Date: 20250516
  Transmission Date: 20250716
  Serious: Yes (Hospitalization)
  Sender: ACCORD
  Company Number: None

PATIENT
  Age: 37 Year
  Sex: Female

DRUGS (8)
  1. CLOZAPINE [Suspect]
     Active Substance: CLOZAPINE
     Indication: Schizophrenia
     Dosage: STRENGTH: 200MG, 2DD1 PIECE 200MG
     Dates: start: 20250224, end: 20250412
  2. LITHIUM [Concomitant]
     Active Substance: LITHIUM
  3. ALBUTEROL [Concomitant]
     Active Substance: ALBUTEROL
  4. LORAZEPAM [Concomitant]
     Active Substance: LORAZEPAM
  5. POLYETHYLENE GLYCOLS [Concomitant]
     Active Substance: POLYETHYLENE GLYCOLS
  6. ACETAMINOPHEN [Concomitant]
     Active Substance: ACETAMINOPHEN
  7. ETONOGESTREL [Concomitant]
     Active Substance: ETONOGESTREL
  8. CLOZAPINE [Suspect]
     Active Substance: CLOZAPINE
     Indication: Schizophrenia
     Dosage: STRENGTH: 25MG, 2DD2 PIECE 25MG
     Dates: start: 20250224, end: 20250412

REACTIONS (4)
  - Leukopenia [Not Recovered/Not Resolved]
  - Agranulocytosis [Not Recovered/Not Resolved]
  - Lymphopenia [Not Recovered/Not Resolved]
  - Monocytopenia [Not Recovered/Not Resolved]
